FAERS Safety Report 11127043 (Version 1)
Quarter: 2015Q2

REPORT INFORMATION
  Report Type: Spontaneous
  Country: US (occurrence: US)
  Receive Date: 20150521
  Receipt Date: 20150521
  Transmission Date: 20150821
  Serious: No
  Sender: FDA-Public Use
  Company Number: US-009507513-1505USA008415

PATIENT
  Age: 40 Year
  Sex: Male

DRUGS (1)
  1. RAGWITEK [Suspect]
     Active Substance: AMBROSIA ARTEMISIIFOLIA POLLEN
     Dosage: UNK, AT NIGHT
     Route: 048

REACTIONS (2)
  - Gastrooesophageal reflux disease [Unknown]
  - Glossodynia [Unknown]

NARRATIVE: CASE EVENT DATE: 20150514
